FAERS Safety Report 16569447 (Version 1)
Quarter: 2019Q3

REPORT INFORMATION
  Report Type: Spontaneous
  Country: DE (occurrence: DE)
  Receive Date: 20190715
  Receipt Date: 20190715
  Transmission Date: 20191004
  Serious: Yes (Hospitalization)
  Sender: FDA-Public Use
  Company Number: DE-DRREDDYS-GER/GER/19/0111806

PATIENT
  Age: 29 Year
  Sex: Female

DRUGS (1)
  1. IBUPROFEN. [Suspect]
     Active Substance: IBUPROFEN
     Indication: PRODUCT USED FOR UNKNOWN INDICATION
     Dosage: 400 MG, 1XTGL. SEIT 2013 (400 MG, 1X DAILY. SINCE 2013)

REACTIONS (5)
  - Chromaturia [Unknown]
  - Haematochezia [Unknown]
  - Abdominal pain lower [Unknown]
  - Dysuria [Unknown]
  - Diarrhoea [Unknown]
